FAERS Safety Report 14526904 (Version 1)
Quarter: 2018Q1

REPORT INFORMATION
  Report Type: Spontaneous
  Country: US (occurrence: US)
  Receive Date: 20180212
  Receipt Date: 20180212
  Transmission Date: 20180509
  Serious: Yes (Other)
  Sender: FDA-Public Use
  Company Number: None

PATIENT
  Age: 55 Year
  Sex: Female
  Weight: 85.5 kg

DRUGS (1)
  1. PILOCARPINE. [Suspect]
     Active Substance: PILOCARPINE
     Indication: SJOGREN^S SYNDROME
     Dosage: ?          OTHER FREQUENCY:3 TIMES DAILY;?
     Route: 048
     Dates: start: 20170201, end: 20170228

REACTIONS (3)
  - Drug ineffective [None]
  - Visual impairment [None]
  - Condition aggravated [None]

NARRATIVE: CASE EVENT DATE: 20170201
